FAERS Safety Report 6213304-7 (Version None)
Quarter: 2009Q2

REPORT INFORMATION
  Report Type: 
  Country: None (occurrence: None)
  Receive Date: 20090601
  Receipt Date: 20090601
  Transmission Date: 20091009
  Serious: Yes (Disabling, Congenital Anomaly)
  Sender: FDA-Public Use
  Company Number: None

PATIENT
  Sex: Female
  Weight: 1.545 kg

DRUGS (8)
  1. RAMIPRIL [Suspect]
     Dosage: MOTHER TOOK TRIATEC (DOSE NOT REPORTED) FROM WEEKS 11-27 GESTATION
  2. POTASSIUM CHLORIDE [Concomitant]
  3. SPIRONOLACTONE [Concomitant]
  4. DALTEPARIN SODIUM [Concomitant]
  5. DIGOXIN [Concomitant]
  6. PANTOPRAZOLE SODIUM [Concomitant]
  7. FUROSEMIDE [Concomitant]
  8. METOPROLOL SUCCINATE [Concomitant]

REACTIONS (11)
  - ANURIA [None]
  - BLINDNESS UNILATERAL [None]
  - CAESAREAN SECTION [None]
  - COUGH [None]
  - HYPOTENSION [None]
  - MATERNAL DRUGS AFFECTING FOETUS [None]
  - NYSTAGMUS [None]
  - OLIGOHYDRAMNIOS [None]
  - PERITONEAL DIALYSIS [None]
  - RETINOPATHY OF PREMATURITY [None]
  - TWIN PREGNANCY [None]
